FAERS Safety Report 12108728 (Version 5)
Quarter: 2016Q3

REPORT INFORMATION
  Report Type: Spontaneous
  Country: US (occurrence: US)
  Receive Date: 20160224
  Receipt Date: 20160708
  Transmission Date: 20161109
  Serious: Yes (Death, Hospitalization, Other)
  Sender: FDA-Public Use
  Company Number: US-TAIHO ONCOLOGY INC-EU-2016-00271

PATIENT
  Age: 40 Year
  Sex: Female

DRUGS (11)
  1. OXYCONTIN [Concomitant]
     Active Substance: OXYCODONE HYDROCHLORIDE
     Dosage: NI
  2. K-DUR [Concomitant]
     Active Substance: POTASSIUM CHLORIDE
     Dosage: NI
  3. LASIX [Concomitant]
     Active Substance: FUROSEMIDE
     Dosage: NI
  4. LONSURF [Suspect]
     Active Substance: TIPIRACIL HYDROCHLORIDE\TRIFLURIDINE
     Indication: COLON CANCER METASTATIC
     Route: 048
     Dates: start: 20151229, end: 20160117
  5. COLACE [Concomitant]
     Active Substance: DOCUSATE SODIUM
     Dosage: NI
  6. SYNTHROID [Concomitant]
     Active Substance: LEVOTHYROXINE SODIUM
     Dosage: NI
  7. OXYCODONE [Concomitant]
     Active Substance: OXYCODONE
     Dosage: NI
  8. AYGESTIN [Concomitant]
     Active Substance: NORETHINDRONE ACETATE
     Dosage: NI
  9. NEURONTIN [Concomitant]
     Active Substance: GABAPENTIN
     Dosage: NI
  10. MIRALAX [Concomitant]
     Active Substance: POLYETHYLENE GLYCOL 3350
     Dosage: NI
  11. RESTORIL [Concomitant]
     Active Substance: TEMAZEPAM
     Dosage: NI

REACTIONS (12)
  - Sepsis [Unknown]
  - Encephalopathy [Unknown]
  - Vision blurred [Unknown]
  - Hyponatraemia [Unknown]
  - Confusional state [Unknown]
  - Disease progression [Fatal]
  - Cough [Unknown]
  - Asthenia [Unknown]
  - Acute kidney injury [Not Recovered/Not Resolved]
  - Pain in extremity [Unknown]
  - Leukocytosis [Unknown]
  - Abdominal pain [Unknown]

NARRATIVE: CASE EVENT DATE: 2016
